FAERS Safety Report 5574833-2 (Version None)
Quarter: 2007Q4

REPORT INFORMATION
  Report Type: 
  Country: None (occurrence: None)
  Receive Date: 20071227
  Receipt Date: 20071224
  Transmission Date: 20080405
  Serious: Yes (Death)
  Sender: FDA-Public Use
  Company Number: US-BRISTOL-MYERS SQUIBB COMPANY-14024681

PATIENT

DRUGS (1)
  1. COUMADIN [Suspect]

REACTIONS (1)
  - DRUG TOXICITY [None]
